FAERS Safety Report 6486667-5 (Version None)
Quarter: 2009Q4

REPORT INFORMATION
  Report Type: 
  Country: None (occurrence: None)
  Receive Date: 20091210
  Receipt Date: 20091130
  Transmission Date: 20100525
  Serious: Yes (Death)
  Sender: FDA-Public Use
  Company Number: US-ROCHE-671600

PATIENT
  Sex: Female
  Weight: 59 kg

DRUGS (2)
  1. CAPECITABINE [Suspect]
     Dosage: STRENGTH: 500 MG/150 MG TABS; FREQUENCY: TWICE DAILY X 7 DAYS
     Route: 048
     Dates: start: 20090810
  2. VECTIBIX [Suspect]
     Indication: DRUG USE FOR UNKNOWN INDICATION
     Route: 065

REACTIONS (6)
  - ABDOMINAL PAIN [None]
  - BLOOD ALKALINE PHOSPHATASE INCREASED [None]
  - DECREASED APPETITE [None]
  - MALIGNANT NEOPLASM PROGRESSION [None]
  - OEDEMA PERIPHERAL [None]
  - RASH [None]
